FAERS Safety Report 23113313 (Version 4)
Quarter: 2023Q4

REPORT INFORMATION
  Report Type: Spontaneous
  Country: CA (occurrence: CA)
  Receive Date: 20231027
  Receipt Date: 20231219
  Transmission Date: 20240110
  Serious: Yes (Hospitalization)
  Sender: FDA-Public Use
  Company Number: CA-CELLTRION INC.-2023CA020505

PATIENT

DRUGS (8)
  1. INFLECTRA [Suspect]
     Active Substance: INFLIXIMAB-DYYB
     Indication: Crohn^s disease
     Dosage: 1100 MG, EVERY 8 WEEKS
     Route: 042
     Dates: start: 20210223, end: 20210223
  2. INFLECTRA [Suspect]
     Active Substance: INFLIXIMAB-DYYB
     Dosage: 10 MG/KG, 1000MG OR 10 MG/KG Q 0, 2 AND 6 WEEKS (RE-INDUCTION), THEN EVERY 6 WEEKS
     Route: 042
     Dates: start: 20210507, end: 20210910
  3. INFLECTRA [Suspect]
     Active Substance: INFLIXIMAB-DYYB
     Dosage: 500 MG, EVERY 8 WEEKS
     Route: 042
     Dates: start: 20211104, end: 20211104
  4. INFLECTRA [Suspect]
     Active Substance: INFLIXIMAB-DYYB
     Dosage: 1000 MG, EVERY 6 WEEKS
     Route: 042
     Dates: start: 20211229, end: 20211229
  5. INFLECTRA [Suspect]
     Active Substance: INFLIXIMAB-DYYB
     Dosage: 1000 MG, Q 0, 2 AND 6 WEEKS (RE-INDUCTION), THEN EVERY 6 WEEKS
     Route: 042
     Dates: start: 20220301
  6. INFLECTRA [Suspect]
     Active Substance: INFLIXIMAB-DYYB
     Dosage: 1000 MG, Q 0, 2 AND 6 WEEKS (RE-INDUCTION), THEN EVERY 6 WEEKS
     Route: 042
     Dates: start: 20230905
  7. INFLECTRA [Suspect]
     Active Substance: INFLIXIMAB-DYYB
     Dosage: 1000 MG 5 WEEKS AND 6 DAYS
     Dates: start: 20231016
  8. INFLECTRA [Suspect]
     Active Substance: INFLIXIMAB-DYYB
     Dosage: 1000 MG, Q 0, 2 AND 6 WEEKS (RE-INDUCTION),THEN EVERY 6 WEEKS
     Route: 042
     Dates: start: 20231128

REACTIONS (9)
  - Fatigue [Unknown]
  - Osteoarthritis [Recovering/Resolving]
  - Pain [Recovering/Resolving]
  - Movement disorder [Recovering/Resolving]
  - Condition aggravated [Recovering/Resolving]
  - Fistula [Recovered/Resolved]
  - Mouth ulceration [Recovered/Resolved]
  - Arthralgia [Recovered/Resolved]
  - Off label use [Unknown]

NARRATIVE: CASE EVENT DATE: 20210507
